FAERS Safety Report 7730222-3 (Version None)
Quarter: 2011Q3

REPORT INFORMATION
  Report Type: 
  Country: None (occurrence: None)
  Receive Date: 20110901
  Receipt Date: 20110901
  Transmission Date: 20111222
  Serious: Yes (Other)
  Sender: FDA-Public Use
  Company Number: None

PATIENT
  Sex: Female

DRUGS (1)
  1. COPAXONE [Suspect]
     Indication: MULTIPLE SCLEROSIS
     Dosage: 20 MG DAILY SUBCUTANEOUS
     Route: 058
     Dates: start: 20100801, end: 20110801

REACTIONS (4)
  - MEMORY IMPAIRMENT [None]
  - DRUG DOSE OMISSION [None]
  - PHARYNGEAL OEDEMA [None]
  - DYSPNOEA [None]
